FAERS Safety Report 22141748 (Version 4)
Quarter: 2023Q4

REPORT INFORMATION
  Report Type: Spontaneous
  Country: US (occurrence: US)
  Receive Date: 20230327
  Receipt Date: 20231218
  Transmission Date: 20240110
  Serious: No
  Sender: FDA-Public Use
  Company Number: US-PFIZER INC-PV202300055330

PATIENT
  Age: 50 Year
  Sex: Female

DRUGS (5)
  1. DOCETAXEL [Suspect]
     Active Substance: DOCETAXEL\DOCETAXEL ANHYDROUS
     Indication: Breast cancer female
     Dosage: 135 MG, SINGLE (C1, TOTAL OF 4 CYCLES, EVERY 3 WEEKS)
     Dates: start: 20191223, end: 20191223
  2. DOCETAXEL [Suspect]
     Active Substance: DOCETAXEL\DOCETAXEL ANHYDROUS
     Dosage: 130 MG, CYCLIC (C2-C4, TOTAL OF 4 CYCLES, EVERY 3 WEEKS)
     Dates: start: 202001, end: 20200225
  3. DOCETAXEL [Suspect]
     Active Substance: DOCETAXEL\DOCETAXEL ANHYDROUS
     Indication: Breast cancer female
     Dosage: 135 MG, SINGLE (C1, TOTAL OF 4 CYCLES, EVERY 3 WEEKS)
     Dates: start: 20191223, end: 20191223
  4. DOCETAXEL [Suspect]
     Active Substance: DOCETAXEL\DOCETAXEL ANHYDROUS
     Dosage: 130 MG, CYCLIC (C2-C4, TOTAL OF 4 CYCLES, EVERY 3 WEEKS)
     Dates: start: 202001, end: 20200225
  5. CYTOXAN [Concomitant]
     Active Substance: CYCLOPHOSPHAMIDE
     Indication: Chemotherapy
     Dosage: UNK

REACTIONS (3)
  - Lacrimation increased [Not Recovered/Not Resolved]
  - Lacrimal structure injury [Not Recovered/Not Resolved]
  - Dacryostenosis acquired [Not Recovered/Not Resolved]

NARRATIVE: CASE EVENT DATE: 20190101
